FAERS Safety Report 5735197-4 (Version None)
Quarter: 2008Q2

REPORT INFORMATION
  Report Type: 
  Country: None (occurrence: None)
  Receive Date: 20080512
  Receipt Date: 20080502
  Transmission Date: 20081010
  Serious: Yes (Hospitalization)
  Sender: FDA-Public Use
  Company Number: AU-ASTRAZENECA-2008AP03430

PATIENT
  Age: 24163 Day
  Sex: Female

DRUGS (5)
  1. BUPIVACAINE HYDROCHLORIDE [Suspect]
     Indication: PARAESTHESIA
     Dates: start: 20070417, end: 20070417
  2. PROPOFOL [Suspect]
     Indication: PARAESTHESIA
     Route: 042
     Dates: start: 20070417, end: 20070417
  3. FENTANYL [Suspect]
     Indication: PARAESTHESIA
  4. MIDAZOLAM HCL [Suspect]
     Indication: PARAESTHESIA
     Dates: start: 20070417, end: 20070417
  5. ACETAMINOPHEN [Suspect]
     Indication: PARAESTHESIA
     Route: 048
     Dates: start: 20070417, end: 20070417

REACTIONS (1)
  - LIVER FUNCTION TEST ABNORMAL [None]
